FAERS Safety Report 7030005-6 (Version None)
Quarter: 2010Q4

REPORT INFORMATION
  Report Type: 
  Country: None (occurrence: None)
  Receive Date: 20101006
  Receipt Date: 20100927
  Transmission Date: 20110411
  Serious: Yes (Hospitalization, Other)
  Sender: FDA-Public Use
  Company Number: FR-JNJFOC-20100908768

PATIENT
  Sex: Female

DRUGS (5)
  1. RISPERDAL [Suspect]
     Indication: PSYCHOTIC DISORDER
     Dosage: LONG-LASTING TREATMENT
     Route: 048
  2. PROZAC [Suspect]
     Indication: PSYCHOTIC DISORDER
     Route: 048
  3. RIVOTRIL [Concomitant]
     Indication: PSYCHOTIC DISORDER
     Route: 065
  4. LEXOMIL [Concomitant]
     Indication: PSYCHOTIC DISORDER
     Route: 048
  5. IMOVANE [Concomitant]
     Indication: PSYCHOTIC DISORDER
     Route: 048

REACTIONS (11)
  - ABNORMAL BEHAVIOUR [None]
  - ALANINE AMINOTRANSFERASE INCREASED [None]
  - ANXIETY [None]
  - ASPARTATE AMINOTRANSFERASE INCREASED [None]
  - ASTHENIA [None]
  - BLOOD ALKALINE PHOSPHATASE INCREASED [None]
  - BURNING SENSATION [None]
  - GAMMA-GLUTAMYLTRANSFERASE INCREASED [None]
  - HEPATIC ENZYME INCREASED [None]
  - IMPAIRED SELF-CARE [None]
  - PRURITUS [None]
